FAERS Safety Report 8518003 (Version 3)
Quarter: 2014Q1

REPORT INFORMATION
  Report Type: Spontaneous
  Country: US (occurrence: US)
  Receive Date: 20120417
  Receipt Date: 20140314
  Transmission Date: 20141002
  Serious: Yes (Other)
  Sender: FDA-Public Use
  Company Number: US-ASTRAZENECA-2011SE46189

PATIENT
  Age: 56 Year
  Sex: Male
  Weight: 83 kg

DRUGS (6)
  1. NEXIUM [Suspect]
     Indication: GASTROOESOPHAGEAL REFLUX DISEASE
     Route: 048
     Dates: start: 2009
  2. LISINOPRIL [Suspect]
     Indication: BLOOD PRESSURE ABNORMAL
     Route: 048
  3. PRILOSEC OTC [Suspect]
     Indication: GASTROOESOPHAGEAL REFLUX DISEASE
     Route: 048
     Dates: start: 201402
  4. TEGRETOL [Concomitant]
  5. DEPAKOTE [Concomitant]
  6. TRAZADONE [Concomitant]
     Indication: SLEEP DISORDER

REACTIONS (8)
  - Convulsion [Not Recovered/Not Resolved]
  - Dyspepsia [Unknown]
  - Feeling of despair [Unknown]
  - Feeling abnormal [Unknown]
  - Insomnia [Unknown]
  - Drug dose omission [Not Recovered/Not Resolved]
  - Intentional drug misuse [Unknown]
  - Drug effect decreased [Unknown]
